FAERS Safety Report 6086500-X (Version None)
Quarter: 2009Q1

REPORT INFORMATION
  Report Type: 
  Country: None (occurrence: None)
  Receive Date: 20090223
  Receipt Date: 20090219
  Transmission Date: 20090719
  Serious: Yes (Death)
  Sender: FDA-Public Use
  Company Number: KR-JNJFOC-20061205325

PATIENT
  Sex: Female
  Weight: 23 kg

DRUGS (4)
  1. SPORANOX [Suspect]
     Route: 042
  2. SPORANOX [Suspect]
     Indication: FEBRILE NEUTROPENIA
     Route: 042
  3. TEICOPLANIN [Concomitant]
     Indication: INFECTION
     Route: 065
  4. MEROPENEM [Concomitant]
     Indication: INFECTION
     Route: 065

REACTIONS (1)
  - DISEASE PROGRESSION [None]
